FAERS Safety Report 6757593-9 (Version None)
Quarter: 2010Q2

REPORT INFORMATION
  Report Type: 
  Country: None (occurrence: None)
  Receive Date: 20100607
  Receipt Date: 20100505
  Transmission Date: 20101027
  Serious: No
  Sender: FDA-Public Use
  Company Number: US-BAYER-201025347GPV

PATIENT
  Age: 48 Year
  Sex: Male

DRUGS (2)
  1. SORAFENIB [Suspect]
     Indication: ACUTE MYELOID LEUKAEMIA
     Route: 048
  2. SORAFENIB [Suspect]
     Route: 048

REACTIONS (1)
  - DIARRHOEA [None]
